FAERS Safety Report 10538931 (Version 2)
Quarter: 2015Q3

REPORT INFORMATION
  Report Type: Spontaneous
  Country: US (occurrence: US)
  Receive Date: 20141023
  Receipt Date: 20150706
  Transmission Date: 20151125
  Serious: Yes (Hospitalization)
  Sender: FDA-Public Use
  Company Number: US-GLAXOSMITHKLINE-US2014GSK010076

PATIENT
  Age: 75 Year
  Sex: Male

DRUGS (16)
  1. DESOWEN [Concomitant]
     Active Substance: DESONIDE
  2. FLOMAX [Concomitant]
     Active Substance: TAMSULOSIN HYDROCHLORIDE
  3. TYLENOL [Concomitant]
     Active Substance: ACETAMINOPHEN
  4. LASIX [Concomitant]
     Active Substance: FUROSEMIDE
  5. SENSIPAR [Concomitant]
     Active Substance: CINACALCET HYDROCHLORIDE
  6. DOLOPHINE [Concomitant]
     Active Substance: METHADONE HYDROCHLORIDE
  7. PROVENTIL HFA [Concomitant]
     Active Substance: ALBUTEROL SULFATE
  8. ADVAIR HFA [Suspect]
     Active Substance: FLUTICASONE PROPIONATE\SALMETEROL XINAFOATE
     Indication: CHRONIC OBSTRUCTIVE PULMONARY DISEASE
     Dosage: UNK, U
     Dates: start: 201203
  9. OMEPRAZOLE. [Concomitant]
     Active Substance: OMEPRAZOLE
  10. TOPROL XL [Concomitant]
     Active Substance: METOPROLOL SUCCINATE
  11. NITROSTAT [Concomitant]
     Active Substance: NITROGLYCERIN
  12. SODIUM BICARBONATE. [Concomitant]
     Active Substance: SODIUM BICARBONATE
  13. CUTIVATE [Concomitant]
     Active Substance: FLUTICASONE PROPIONATE
  14. COZAAR [Concomitant]
     Active Substance: LOSARTAN POTASSIUM
  15. LIPITOR [Concomitant]
     Active Substance: ATORVASTATIN CALCIUM
  16. ROCALTROL [Concomitant]
     Active Substance: CALCITRIOL

REACTIONS (2)
  - Viral upper respiratory tract infection [Unknown]
  - Chronic obstructive pulmonary disease [Recovered/Resolved]

NARRATIVE: CASE EVENT DATE: 20141012
